FAERS Safety Report 12683457 (Version 1)
Quarter: 2016Q3

REPORT INFORMATION
  Report Type: Spontaneous
  Country: US (occurrence: None)
  Receive Date: 20160824
  Receipt Date: 20160824
  Transmission Date: 20161109
  Serious: No
  Sender: FDA-Public Use
  Company Number: None

PATIENT

DRUGS (2)
  1. METOPROLOL TARTRATE METOPROLOL [Suspect]
     Active Substance: METOPROLOL TARTRATE
     Route: 048
  2. METOPROLOL TARTRATE METOPROLOL [Suspect]
     Active Substance: METOPROLOL TARTRATE
     Route: 048

REACTIONS (4)
  - Drug dispensing error [None]
  - Transcription medication error [None]
  - Heart rate increased [None]
  - Incorrect dose administered [None]
